FAERS Safety Report 9671320 (Version 1)
Quarter: 2013Q4

REPORT INFORMATION
  Report Type: Spontaneous
  Country: JP (occurrence: JP)
  Receive Date: 20131106
  Receipt Date: 20131106
  Transmission Date: 20140711
  Serious: Yes (Other)
  Sender: FDA-Public Use
  Company Number: PHHY2013JP124509

PATIENT
  Age: 75 Year
  Sex: Female

DRUGS (4)
  1. ZOLPIDEM SANDOZ [Suspect]
     Dosage: 10 MG, DAILY
     Route: 048
     Dates: end: 20131026
  2. PAROXETINE HYDROCHLORIDE [Concomitant]
     Dosage: 10 MG, UNK
     Route: 048
  3. AMLODIPINE BESILATE [Concomitant]
     Dosage: 5 MG, UNK
     Route: 048
  4. LEVOTHYROXINE SODIUM [Concomitant]
     Dosage: 25 UG, UNK
     Route: 048

REACTIONS (5)
  - Altered state of consciousness [Unknown]
  - Contusion [Unknown]
  - Haemorrhage [Unknown]
  - Memory impairment [Unknown]
  - Somnolence [Unknown]
